FAERS Safety Report 17020037 (Version 1)
Quarter: 2019Q4

REPORT INFORMATION
  Report Type: Spontaneous
  Country: MX (occurrence: MX)
  Receive Date: 20191112
  Receipt Date: 20191112
  Transmission Date: 20200122
  Serious: Yes (Hospitalization, Other)
  Sender: FDA-Public Use
  Company Number: MX-MICRO LABS LIMITED-ML2019-02977

PATIENT
  Age: 27 Year
  Sex: Female

DRUGS (1)
  1. VERAPAMIL HYDROCHLORIDE. [Suspect]
     Active Substance: VERAPAMIL HYDROCHLORIDE

REACTIONS (6)
  - Intentional overdose [Unknown]
  - Gastrointestinal necrosis [Unknown]
  - Tachypnoea [Recovered/Resolved]
  - Depressed level of consciousness [Recovered/Resolved]
  - Tachycardia [Recovered/Resolved]
  - Hypotension [Recovered/Resolved]
